FAERS Safety Report 5044573-7 (Version None)
Quarter: 2006Q2

REPORT INFORMATION
  Report Type: 
  Country: None (occurrence: None)
  Receive Date: 20060629
  Receipt Date: 20060621
  Transmission Date: 20061013
  Serious: Yes (Other)
  Sender: FDA-Public Use
  Company Number: 2006078986

PATIENT
  Age: 45 Year
  Sex: Male

DRUGS (1)
  1. CELEBREX [Suspect]
     Indication: INFLAMMATION
     Dosage: 200 MG (200 MG, 1 IN 1 D), ORAL
     Route: 048

REACTIONS (4)
  - ASTHMA [None]
  - CONDITION AGGRAVATED [None]
  - INFLAMMATION [None]
  - PULMONARY FUNCTION TEST DECREASED [None]
